FAERS Safety Report 7302425-3 (Version None)
Quarter: 2011Q1

REPORT INFORMATION
  Report Type: 
  Country: None (occurrence: None)
  Receive Date: 20110218
  Receipt Date: 20110210
  Transmission Date: 20110831
  Serious: Yes (Other)
  Sender: FDA-Public Use
  Company Number: US-CEPHALON-2011000681

PATIENT
  Sex: Female

DRUGS (1)
  1. NUVIGIL [Suspect]
     Route: 048
     Dates: end: 20110209

REACTIONS (3)
  - GENERALISED ERYTHEMA [None]
  - ANAPHYLACTIC REACTION [None]
  - PRURITUS GENERALISED [None]
